FAERS Safety Report 11230686 (Version 1)
Quarter: 2015Q2

REPORT INFORMATION
  Report Type: Spontaneous
  Country: US (occurrence: None)
  Receive Date: 20150629
  Receipt Date: 20150629
  Transmission Date: 20150821
  Serious: No
  Sender: FDA-Public Use
  Company Number: None

PATIENT
  Sex: Female

DRUGS (5)
  1. DULOXETINE HCL DR CAPS 30MG LUPIN PHARM [Suspect]
     Active Substance: DULOXETINE HYDROCHLORIDE
     Indication: FIBROMYALGIA
     Dosage: 1 PILL
     Route: 048
     Dates: start: 2006
  2. ALPRAZOLAM. [Concomitant]
     Active Substance: ALPRAZOLAM
  3. CARBIDOPA LEVODOPA 25/100 [Concomitant]
  4. CARBIDOPA/LEVODOPA ER 50/200 [Concomitant]
  5. AMITIZA [Concomitant]
     Active Substance: LUBIPROSTONE

REACTIONS (5)
  - Parkinsonism [None]
  - Feeling abnormal [None]
  - Weight decreased [None]
  - Fatigue [None]
  - Dry mouth [None]
